FAERS Safety Report 16275616 (Version 1)
Quarter: 2019Q2

REPORT INFORMATION
  Report Type: Spontaneous
  Country: US (occurrence: US)
  Receive Date: 20190506
  Receipt Date: 20190506
  Transmission Date: 20190711
  Serious: Yes (Hospitalization, Other)
  Sender: FDA-Public Use
  Company Number: US-SA-2019SA122026

PATIENT
  Age: 65 Year
  Sex: Male

DRUGS (15)
  1. METFORMIN HCL [Concomitant]
     Active Substance: METFORMIN HYDROCHLORIDE
  2. MONTELUKAST SODIUM. [Concomitant]
     Active Substance: MONTELUKAST SODIUM
  3. TESTOSTERONE. [Concomitant]
     Active Substance: TESTOSTERONE
  4. OMEPRAZOLE. [Concomitant]
     Active Substance: OMEPRAZOLE
  5. METOLAZONE. [Concomitant]
     Active Substance: METOLAZONE
  6. PRALUENT [Suspect]
     Active Substance: ALIROCUMAB
     Dosage: 75 MG, QOW
     Route: 058
  7. ALLOPURINOL. [Concomitant]
     Active Substance: ALLOPURINOL
  8. PREDNISONE. [Concomitant]
     Active Substance: PREDNISONE
  9. ALBUTEROL SULFATE. [Concomitant]
     Active Substance: ALBUTEROL SULFATE
  10. AMITIZA [Concomitant]
     Active Substance: LUBIPROSTONE
  11. ETODOLAC. [Concomitant]
     Active Substance: ETODOLAC
  12. HYDROCORTISONE. [Concomitant]
     Active Substance: HYDROCORTISONE
  13. POTASSIUM CHLORIDE. [Concomitant]
     Active Substance: POTASSIUM CHLORIDE
  14. ADVAIR HFA [Concomitant]
     Active Substance: FLUTICASONE PROPIONATE\SALMETEROL XINAFOATE
  15. TORSEMIDE. [Concomitant]
     Active Substance: TORSEMIDE

REACTIONS (1)
  - Cardiac pacemaker insertion [Unknown]
